FAERS Safety Report 19839996 (Version 1)
Quarter: 2021Q3

REPORT INFORMATION
  Report Type: Spontaneous
  Country: US (occurrence: US)
  Receive Date: 20210916
  Receipt Date: 20210916
  Transmission Date: 20211014
  Serious: Yes (Hospitalization)
  Sender: FDA-Public Use
  Company Number: None

PATIENT
  Age: 66 Year
  Sex: Female
  Weight: 85.5 kg

DRUGS (9)
  1. CYMBALTA [Concomitant]
     Active Substance: DULOXETINE HYDROCHLORIDE
  2. MELATONIN [Concomitant]
     Active Substance: MELATONIN
  3. ROSUVASTATIN. [Concomitant]
     Active Substance: ROSUVASTATIN
  4. PROBIOTICS [Concomitant]
     Active Substance: PROBIOTICS NOS
  5. DOXEPIN [Concomitant]
     Active Substance: DOXEPIN
  6. ALPRAZOLAM. [Concomitant]
     Active Substance: ALPRAZOLAM
  7. HYDROCODONE 5/325 [Concomitant]
     Active Substance: HYDROCODONE
  8. MORINGA [Concomitant]
  9. XELJANZ [Suspect]
     Active Substance: TOFACITINIB CITRATE
     Indication: RHEUMATOID ARTHRITIS
     Route: 048

REACTIONS (4)
  - Back pain [None]
  - Pulmonary mass [None]
  - Nephrectomy [None]
  - Renal cancer [None]

NARRATIVE: CASE EVENT DATE: 20210312
